FAERS Safety Report 8949085 (Version 3)
Quarter: 2013Q1

REPORT INFORMATION
  Report Type: Report from Study
  Country: DE (occurrence: DE)
  Receive Date: 20121206
  Receipt Date: 20130226
  Transmission Date: 20140127
  Serious: Yes (Death, Hospitalization, Other)
  Sender: FDA-Public Use
  Company Number: DE-ROCHE-1164807

PATIENT
  Sex: Male
  Weight: 73 kg

DRUGS (11)
  1. TRASTUZUMAB [Suspect]
     Indication: METASTATIC GASTRIC CANCER
     Route: 042
     Dates: end: 20121029
  2. TRASTUZUMAB [Suspect]
     Route: 042
     Dates: start: 20120301, end: 20120301
  3. TRASTUZUMAB [Suspect]
     Route: 042
  4. FLUOROURACIL [Suspect]
     Indication: METASTATIC GASTRIC CANCER
     Route: 042
     Dates: start: 20121029, end: 20121030
  5. FLUOROURACIL [Suspect]
     Route: 042
     Dates: start: 20120301, end: 20120306
  6. FLUOROURACIL [Suspect]
     Route: 042
  7. OXALIPLATIN [Suspect]
     Indication: METASTATIC GASTRIC CANCER
     Route: 042
     Dates: start: 20121029, end: 20121029
  8. DOCETAXEL [Suspect]
     Indication: METASTATIC GASTRIC CANCER
     Route: 042
     Dates: start: 20121029, end: 20121029
  9. FOLINIC ACID [Suspect]
     Indication: METASTATIC GASTRIC CANCER
     Route: 042
     Dates: start: 20121029, end: 20121029
  10. CISPLATIN [Suspect]
     Indication: METASTATIC GASTRIC CANCER
     Route: 042
     Dates: start: 20120301, end: 20120301
  11. CISPLATIN [Suspect]
     Route: 042

REACTIONS (7)
  - Adenocarcinoma gastric [Fatal]
  - Metastases to liver [Fatal]
  - Ascites [Not Recovered/Not Resolved]
  - Nausea [Recovered/Resolved]
  - Vomiting [Recovered/Resolved]
  - Hiccups [Recovered/Resolved]
  - Mucosal inflammation [Recovered/Resolved]
